FAERS Safety Report 23757793 (Version 5)
Quarter: 2024Q2

REPORT INFORMATION
  Report Type: Spontaneous
  Country: US (occurrence: US)
  Receive Date: 20240418
  Receipt Date: 20240613
  Transmission Date: 20240716
  Serious: No
  Sender: FDA-Public Use
  Company Number: US-002147023-NVSC2024US082418

PATIENT
  Age: 34 Year
  Sex: Male

DRUGS (3)
  1. KESIMPTA [Suspect]
     Active Substance: OFATUMUMAB
     Indication: Product used for unknown indication
     Dosage: UNK, QMO
     Route: 065
  2. COPAXONE [Suspect]
     Active Substance: GLATIRAMER ACETATE
     Indication: Product used for unknown indication
     Dosage: UNK
     Route: 065
  3. TECFIDERA [Suspect]
     Active Substance: DIMETHYL FUMARATE
     Indication: Product used for unknown indication
     Dosage: UNK, QMO
     Route: 065

REACTIONS (8)
  - Autonomic nervous system imbalance [Unknown]
  - Lymphocyte count decreased [Unknown]
  - Illness [Unknown]
  - Muscle spasms [Unknown]
  - Mental fatigue [Unknown]
  - Personality change [Unknown]
  - Speech disorder [Unknown]
  - Dyspnoea [Unknown]
